FAERS Safety Report 4869655-1 (Version None)
Quarter: 2005Q4

REPORT INFORMATION
  Report Type: 
  Country: None (occurrence: None)
  Receive Date: 20051230
  Receipt Date: 20051223
  Transmission Date: 20060501
  Serious: Yes (Disabling)
  Sender: FDA-Public Use
  Company Number: FR-ABBOTT-05P-056-0320629-00

PATIENT
  Age: 92 Year
  Sex: Female

DRUGS (1)
  1. LIPANTHYL [Suspect]
     Indication: DYSLIPIDAEMIA
     Route: 048
     Dates: start: 19800101

REACTIONS (3)
  - APHASIA [None]
  - CEREBROVASCULAR ACCIDENT [None]
  - HEMIPLEGIA [None]
